FAERS Safety Report 16893993 (Version 2)
Quarter: 2019Q4

REPORT INFORMATION
  Report Type: Report from Study
  Country: AR (occurrence: AR)
  Receive Date: 20191008
  Receipt Date: 20191119
  Transmission Date: 20200122
  Serious: Yes (Other)
  Sender: FDA-Public Use
  Company Number: AR-ACTELION-A-CH2019-196418

PATIENT
  Sex: Male
  Weight: 70 kg

DRUGS (2)
  1. SILDENAFIL. [Concomitant]
     Active Substance: SILDENAFIL
  2. OPSUMIT [Suspect]
     Active Substance: MACITENTAN
     Indication: PULMONARY ARTERIAL HYPERTENSION
     Dosage: 400 MG, BID
     Route: 048

REACTIONS (4)
  - Diarrhoea [Unknown]
  - Abdominal pain upper [Unknown]
  - Overdose [Unknown]
  - Haemorrhage [Unknown]
